FAERS Safety Report 8549354-5 (Version None)
Quarter: 2012Q2

REPORT INFORMATION
  Report Type: 
  Country: None (occurrence: None)
  Receive Date: 20120416
  Receipt Date: 20110630
  Transmission Date: 20120825
  Serious: Yes (Other)
  Sender: FDA-Public Use
  Company Number: PHHY2011US58756

PATIENT
  Sex: Male

DRUGS (6)
  1. HYDROCHLOROTHIAZIDE [Suspect]
  2. VIAGRA [Suspect]
  3. SIMVASTATIN [Suspect]
     Dosage: 20 MG
  4. ASPIRIN [Suspect]
     Dosage: 81 MG
  5. DIOVAN [Suspect]
     Dosage: 320 MG AT BEDTIME
  6. CARVEDILOL [Suspect]
     Dosage: 25 MG, BID

REACTIONS (1)
  - RENAL IMPAIRMENT [None]
